FAERS Safety Report 8921991 (Version 1)
Quarter: 2012Q4

REPORT INFORMATION
  Report Type: Spontaneous
  Country: US (occurrence: None)
  Receive Date: 20121120
  Receipt Date: 20121120
  Transmission Date: 20130627
  Serious: No
  Sender: FDA-Public Use
  Company Number: None

PATIENT
  Age: 40 Year
  Sex: Female

DRUGS (1)
  1. WARFARIN [Suspect]
     Indication: ANTICOAGULANT THERAPY
     Dosage: 7.5mg qhs or ud p.o.
     Route: 048
     Dates: start: 20121017

REACTIONS (3)
  - Rash [None]
  - Product substitution issue [None]
  - Product quality issue [None]
